FAERS Safety Report 25802007 (Version 1)
Quarter: 2025Q3

REPORT INFORMATION
  Report Type: Spontaneous
  Country: CN (occurrence: CN)
  Receive Date: 20250915
  Receipt Date: 20250915
  Transmission Date: 20251020
  Serious: Yes (Death, Other)
  Sender: BAUSCH AND LOMB
  Company Number: CN-BAUSCH-BH-2025-017394

PATIENT
  Age: 74 Year
  Sex: Male
  Weight: 59 kg

DRUGS (8)
  1. DEXAMETHASONE SODIUM PHOSPHATE [Suspect]
     Active Substance: DEXAMETHASONE SODIUM PHOSPHATE
     Indication: Meningitis cryptococcal
     Route: 030
  2. FLUCYTOSINE [Suspect]
     Active Substance: FLUCYTOSINE
     Indication: Meningitis cryptococcal
     Route: 048
  3. FLUCONAZOLE [Suspect]
     Active Substance: FLUCONAZOLE
     Indication: Meningitis cryptococcal
     Dosage: 0.4 G IVGTT QD AND DOUBLE THE FIRST DAY, 6TH DAY
     Route: 042
  4. FLUCONAZOLE [Suspect]
     Active Substance: FLUCONAZOLE
     Dosage: 0.4 G IVGTT QD AND DOUBLE THE FIRST DAY, 7-19 DAYS
     Route: 042
  5. FLUCONAZOLE [Suspect]
     Active Substance: FLUCONAZOLE
     Dosage: 0.6 G IVGTT QD, DAYS 20-49
     Route: 042
  6. FLUCONAZOLE [Suspect]
     Active Substance: FLUCONAZOLE
     Dosage: 0.6 G PO QD, DAYS 90-120
     Route: 048
  7. AMPHOTERICIN B DEOXYCHOLATE [Suspect]
     Active Substance: AMPHOTERICIN B DEOXYCHOLATE
     Indication: Meningitis cryptococcal
     Dosage: INCREASE THE DOSE GRADUALLY FROM 5 MG AND KEEP 35 MG FROM DAY 5 IVGTT QD
     Route: 042
  8. AMPHOTERICIN B [Concomitant]
     Active Substance: AMPHOTERICIN B
     Indication: Meningitis cryptococcal

REACTIONS (4)
  - Bacterial infection [Fatal]
  - Klebsiella infection [Fatal]
  - Meningitis bacterial [Fatal]
  - Treatment failure [Unknown]
